FAERS Safety Report 5418709-X (Version None)
Quarter: 2007Q3

REPORT INFORMATION
  Report Type: 
  Country: None (occurrence: None)
  Receive Date: 20070817
  Receipt Date: 20070816
  Transmission Date: 20080115
  Serious: Yes (Other)
  Sender: FDA-Public Use
  Company Number: US-MERCK-0705USA02463

PATIENT
  Age: 5 Year
  Sex: Female
  Weight: 20 kg

DRUGS (3)
  1. SINGULAIR [Suspect]
     Indication: ASTHMA
     Route: 048
     Dates: start: 20060201, end: 20070505
  2. SINGULAIR [Suspect]
     Indication: RHINITIS ALLERGIC
     Route: 048
     Dates: start: 20060201, end: 20070505
  3. NASONEX [Concomitant]
     Indication: RHINITIS ALLERGIC
     Dates: start: 20060222

REACTIONS (3)
  - COMPLEX PARTIAL SEIZURES [None]
  - OVERDOSE [None]
  - STARING [None]
